FAERS Safety Report 8240260-2 (Version None)
Quarter: 2012Q1

REPORT INFORMATION
  Report Type: 
  Country: None (occurrence: None)
  Receive Date: 20120328
  Receipt Date: 20120328
  Transmission Date: 20120608
  Serious: Yes (Other)
  Sender: FDA-Public Use
  Company Number: None

PATIENT
  Sex: Female
  Weight: 52.163 kg

DRUGS (2)
  1. METFORMIN HCL [Concomitant]
     Route: 048
  2. JANUVIA [Suspect]

REACTIONS (1)
  - PANCREATIC CARCINOMA [None]
